FAERS Safety Report 4308785-X (Version None)
Quarter: 2004Q1

REPORT INFORMATION
  Report Type: 
  Country: None (occurrence: None)
  Receive Date: 20040227
  Receipt Date: 20040227
  Transmission Date: 20041129
  Serious: Yes (Hospitalization)
  Sender: FDA-Public Use
  Company Number: None

PATIENT
  Age: 86 Year
  Sex: Male

DRUGS (3)
  1. ULTRAM [Suspect]
     Indication: CARPAL TUNNEL SYNDROME
     Dosage: 50 MG PRN PO
     Route: 048
     Dates: start: 20031125, end: 20031126
  2. ULTRAM [Suspect]
     Indication: PAIN
     Dosage: 50 MG PRN PO
     Route: 048
     Dates: start: 20031125, end: 20031126
  3. ULTRAM [Suspect]
     Indication: SPINAL COLUMN STENOSIS
     Dosage: 50 MG PRN PO
     Route: 048
     Dates: start: 20031125, end: 20031126

REACTIONS (4)
  - CONVULSION [None]
  - DIZZINESS [None]
  - LOSS OF CONSCIOUSNESS [None]
  - VERTIGO [None]
